FAERS Safety Report 6476813-1 (Version None)
Quarter: 2009Q4

REPORT INFORMATION
  Report Type: 
  Country: None (occurrence: None)
  Receive Date: 20091207
  Receipt Date: 20091125
  Transmission Date: 20100525
  Serious: Yes (Hospitalization)
  Sender: FDA-Public Use
  Company Number: US-BAYER-200941495NA

PATIENT
  Sex: Female

DRUGS (1)
  1. YAZ [Suspect]
     Indication: MENORRHAGIA
     Dates: start: 20070701

REACTIONS (9)
  - DEEP VEIN THROMBOSIS [None]
  - HEADACHE [None]
  - INJURY [None]
  - MUSCLE SPASMS [None]
  - PAIN [None]
  - PULMONARY EMBOLISM [None]
  - SLUGGISHNESS [None]
  - VASODILATATION [None]
  - VENOUS INSUFFICIENCY [None]
